FAERS Safety Report 22260941 (Version 3)
Quarter: 2023Q2

REPORT INFORMATION
  Report Type: Spontaneous
  Country: JP (occurrence: JP)
  Receive Date: 20230427
  Receipt Date: 20230525
  Transmission Date: 20230722
  Serious: Yes (Death, Other)
  Sender: FDA-Public Use
  Company Number: None

PATIENT
  Sex: Female

DRUGS (1)
  1. BOTOX [Suspect]
     Active Substance: ONABOTULINUMTOXINA
     Indication: Muscle spasticity
     Dosage: 300 UNITS, SINGLE
     Dates: start: 20230327, end: 20230327

REACTIONS (1)
  - Neoplasm malignant [Fatal]
